FAERS Safety Report 4288882-8 (Version None)
Quarter: 2004Q1

REPORT INFORMATION
  Report Type: 
  Country: None (occurrence: None)
  Receive Date: 20040206
  Receipt Date: 20040206
  Transmission Date: 20041129
  Serious: Yes (Death)
  Sender: FDA-Public Use
  Company Number: None

PATIENT
  Age: 84 Year
  Sex: Female
  Weight: 53 kg

DRUGS (8)
  1. NATRECOR [Suspect]
     Indication: CARDIAC OPERATION
     Dosage: 2MCG/KG BOLUS INTRAVENOUS, 0.04 MCG/KG MIN INTRAVENOUS
     Route: 040
     Dates: start: 20031231, end: 20031231
  2. EPINEPHRINE [Concomitant]
  3. INAMRINONE [Concomitant]
  4. PROPOFOL TITRATE [Concomitant]
  5. BUMETANIDE [Concomitant]
  6. PROTAMINE TITRATE [Concomitant]
  7. VANCOMYCIN [Concomitant]
  8. DIGOXIN [Concomitant]

REACTIONS (2)
  - MEDICATION ERROR [None]
  - OVERDOSE [None]
